FAERS Safety Report 4423602-5 (Version None)
Quarter: 2004Q3

REPORT INFORMATION
  Report Type: 
  Country: None (occurrence: None)
  Receive Date: 20040805
  Receipt Date: 20040723
  Transmission Date: 20050211
  Serious: Yes (Hospitalization)
  Sender: FDA-Public Use
  Company Number: FR-JNJFOC-20040405795

PATIENT
  Age: 88 Year
  Sex: Female
  Weight: 63 kg

DRUGS (9)
  1. RISPERDAL [Suspect]
     Indication: ABNORMAL BEHAVIOUR
     Dosage: 0.25 MG, IN 1 DAY, ORAL  : 0.5 MG, IN 1 DAY, ORAL
     Route: 048
     Dates: start: 20040419, end: 20040425
  2. RISPERDAL [Suspect]
     Indication: ABNORMAL BEHAVIOUR
     Dosage: 0.25 MG, IN 1 DAY, ORAL  : 0.5 MG, IN 1 DAY, ORAL
     Route: 048
     Dates: start: 20040426, end: 20040429
  3. PREVISCAN (FLUINDIONE) [Concomitant]
  4. COVERSYL (PERINDOPRIL) [Concomitant]
  5. AMLODIPINE BESYLATE [Concomitant]
  6. LASIX [Concomitant]
  7. CLOPIXOL (ZUCLOPENTHIXOL DECANOATE) [Concomitant]
  8. DAFLON (DIOSMIN) [Concomitant]
  9. DIAFUSOR (GLYCERYL TRINITRATE) [Concomitant]

REACTIONS (5)
  - ANTINUCLEAR ANTIBODY POSITIVE [None]
  - ECZEMA [None]
  - LEUKOCYTOCLASTIC VASCULITIS [None]
  - VASCULAR PURPURA [None]
  - VASCULITIS NECROTISING [None]
